FAERS Safety Report 11306229 (Version 1)
Quarter: 2015Q3

REPORT INFORMATION
  Report Type: Spontaneous
  Country: US (occurrence: US)
  Receive Date: 20150723
  Receipt Date: 20150723
  Transmission Date: 20151125
  Serious: No
  Sender: FDA-Public Use
  Company Number: US-GILEAD-2015-0164277

PATIENT
  Age: 48 Year
  Sex: Female

DRUGS (1)
  1. HARVONI [Suspect]
     Active Substance: LEDIPASVIR\SOFOSBUVIR
     Indication: PRODUCT USED FOR UNKNOWN INDICATION
     Dosage: UNK
     Route: 065
     Dates: start: 20150608

REACTIONS (9)
  - Anxiety [Unknown]
  - Bone pain [Unknown]
  - Bone disorder [Unknown]
  - Fatigue [Unknown]
  - Vomiting [Not Recovered/Not Resolved]
  - Arthralgia [Unknown]
  - Headache [Not Recovered/Not Resolved]
  - Insomnia [Unknown]
  - Mood swings [Unknown]

NARRATIVE: CASE EVENT DATE: 20150622
